FAERS Safety Report 12782713 (Version 2)
Quarter: 2017Q2

REPORT INFORMATION
  Report Type: Report from Study
  Country: US (occurrence: US)
  Receive Date: 20160927
  Receipt Date: 20170601
  Transmission Date: 20170830
  Serious: Yes (Hospitalization)
  Sender: FDA-Public Use
  Company Number: US-ACTELION-A-US2016-142679

PATIENT
  Age: 71 Year
  Sex: Female

DRUGS (11)
  1. CLONAZEPAM. [Concomitant]
     Active Substance: CLONAZEPAM
  2. SILDENAFIL. [Concomitant]
     Active Substance: SILDENAFIL
  3. XARELTO [Concomitant]
     Active Substance: RIVAROXABAN
  4. ASPIRIN. [Concomitant]
     Active Substance: ASPIRIN
  5. SPIRONOLACTONE. [Concomitant]
     Active Substance: SPIRONOLACTONE
  6. LIPITOR [Concomitant]
     Active Substance: ATORVASTATIN CALCIUM
  7. MAGNESIUM [Concomitant]
     Active Substance: MAGNESIUM
  8. SOTALOL. [Concomitant]
     Active Substance: SOTALOL
  9. TOPROL XL [Concomitant]
     Active Substance: METOPROLOL SUCCINATE
  10. TRACLEER [Suspect]
     Active Substance: BOSENTAN
     Indication: PULMONARY ARTERIAL HYPERTENSION
     Dosage: 125 MG, BID
     Route: 048
     Dates: start: 20140207
  11. CARTIA XT [Concomitant]
     Active Substance: DILTIAZEM HYDROCHLORIDE

REACTIONS (3)
  - Atrial fibrillation [Recovered/Resolved]
  - Fatigue [Not Recovered/Not Resolved]
  - Cardiac ablation [Recovered/Resolved]

NARRATIVE: CASE EVENT DATE: 20160901
